FAERS Safety Report 8572545-4 (Version None)
Quarter: 2012Q2

REPORT INFORMATION
  Report Type: 
  Country: None (occurrence: None)
  Receive Date: 20120423
  Receipt Date: 20100311
  Transmission Date: 20120825
  Serious: Yes (Hospitalization)
  Sender: FDA-Public Use
  Company Number: PHEH2010US03094

PATIENT
  Age: 16 Year
  Sex: Male
  Weight: 48.5 kg

DRUGS (5)
  1. EXJADE [Suspect]
     Indication: IRON OVERLOAD
     Dosage: 1250 MG, QD, ORAL
     Route: 048
     Dates: start: 20060101
  2. AMOXICILLIN [Concomitant]
  3. DEPAKOTE [Concomitant]
  4. HYDROXYUREA [Concomitant]
  5. ASPIRIN [Concomitant]

REACTIONS (2)
  - SICKLE CELL ANAEMIA WITH CRISIS [None]
  - ARTHRALGIA [None]
